FAERS Safety Report 6773758-4 (Version None)
Quarter: 2010Q2

REPORT INFORMATION
  Report Type: 
  Country: None (occurrence: None)
  Receive Date: 20100617
  Receipt Date: 20100607
  Transmission Date: 20101027
  Serious: No
  Sender: FDA-Public Use
  Company Number: US-BIOGENIDEC-2010BI019219

PATIENT
  Age: 24 Year
  Sex: Male

DRUGS (2)
  1. TYSABRI [Suspect]
     Indication: MULTIPLE SCLEROSIS
     Route: 042
     Dates: start: 20100421
  2. AVONEX [Concomitant]
     Indication: MULTIPLE SCLEROSIS
     Route: 030
     Dates: start: 20091129

REACTIONS (5)
  - ERYTHEMA [None]
  - HYPOAESTHESIA ORAL [None]
  - PRURITUS GENERALISED [None]
  - RASH [None]
  - RASH MACULAR [None]
